FAERS Safety Report 5628490-7 (Version None)
Quarter: 2008Q1

REPORT INFORMATION
  Report Type: 
  Country: None (occurrence: None)
  Receive Date: 20080215
  Receipt Date: 20080209
  Transmission Date: 20080703
  Serious: Yes (Other)
  Sender: FDA-Public Use
  Company Number: BE-ABBOTT-07P-013-0370322-00

PATIENT
  Sex: Female

DRUGS (2)
  1. REDUCTIL [Suspect]
     Indication: OVERWEIGHT
     Dates: start: 20070504, end: 20070525
  2. REDUCTIL [Suspect]
     Indication: WEIGHT CONTROL

REACTIONS (2)
  - ABORTION INDUCED [None]
  - UNINTENDED PREGNANCY [None]
